FAERS Safety Report 8401424-8 (Version None)
Quarter: 2012Q2

REPORT INFORMATION
  Report Type: 
  Country: None (occurrence: None)
  Receive Date: 20120530
  Receipt Date: 20120530
  Transmission Date: 20120825
  Serious: Yes (Hospitalization, Other)
  Sender: FDA-Public Use
  Company Number: None

PATIENT
  Sex: Male

DRUGS (10)
  1. ASPIRIN [Concomitant]
  2. LAXATIVES [Concomitant]
  3. CRESTOR [Concomitant]
  4. LOVAZA [Concomitant]
  5. PLAVIX [Concomitant]
  6. FOLIC ACID [Concomitant]
  7. CHOLESTYRAMINE [Suspect]
     Indication: BLOOD CHOLESTEROL ABNORMAL
     Dosage: 5GRAMS ONCE A DAY
  8. Q10 [Concomitant]
  9. IRON [Concomitant]
  10. METOPROLOL [Concomitant]

REACTIONS (4)
  - INTESTINAL OBSTRUCTION [None]
  - CONSTIPATION [None]
  - CARDIAC OPERATION [None]
  - LOSS OF CONSCIOUSNESS [None]
